FAERS Safety Report 26185735 (Version 1)
Quarter: 2025Q4

REPORT INFORMATION
  Report Type: Spontaneous
  Country: US (occurrence: None)
  Receive Date: 20251219
  Receipt Date: 20251219
  Transmission Date: 20260118
  Serious: No
  Sender: FDA-CTU
  Company Number: None

PATIENT
  Age: 71 Year
  Sex: Male

DRUGS (10)
  1. MYCOPHENOLIC ACID [Suspect]
     Active Substance: MYCOPHENOLIC ACID
     Dosage: FREQUENCY : TWICE A DAY;
     Route: 048
  2. TACROLIMUS [Suspect]
     Active Substance: TACROLIMUS
     Dosage: FREQUENCY : TWICE A DAY;
     Route: 048
  3. PREDNISONE [Concomitant]
     Active Substance: PREDNISONE
  4. MAG-OXIDE 400 MG TABLETS [Concomitant]
  5. BACTRIM 400 MG-80 MG TABLETS [Concomitant]
  6. AMLODIPINE [Concomitant]
     Active Substance: AMLODIPINE BESYLATE
  7. TAMSULOSIN [Concomitant]
     Active Substance: TAMSULOSIN
  8. PRAVASTATIN 20 MG TABLETS [Concomitant]
  9. ELIQUIS 5 MG TABLETS [Concomitant]
  10. VALGANCICLOVIR 450 MG TABLETS [Concomitant]

REACTIONS (1)
  - Biopsy [None]

NARRATIVE: CASE EVENT DATE: 20251217
